FAERS Safety Report 9110296 (Version 1)
Quarter: 2013Q1

REPORT INFORMATION
  Report Type: Spontaneous
  Country: US (occurrence: US)
  Receive Date: 20130222
  Receipt Date: 20130222
  Transmission Date: 20140127
  Serious: Yes (Other)
  Sender: FDA-Public Use
  Company Number: US-PFIZER INC-2013064809

PATIENT
  Sex: Male

DRUGS (4)
  1. ADVIL [Suspect]
     Indication: GOUT
     Dosage: 200 MG, UNK
  2. NORVASC [Suspect]
     Indication: HYPERTENSION
     Dosage: UNK
  3. BENICAR [Concomitant]
     Dosage: UNK
  4. HYDRALAZINE [Concomitant]
     Dosage: UNK

REACTIONS (1)
  - Blood pressure systolic abnormal [Unknown]
